FAERS Safety Report 25335518 (Version 1)
Quarter: 2025Q2

REPORT INFORMATION
  Report Type: Other
  Country: US (occurrence: US)
  Receive Date: 20250520
  Receipt Date: 20250520
  Transmission Date: 20250717
  Serious: Yes (Other)
  Sender: CHEMI SPA
  Company Number: US-CHEMI SPA-2177059

PATIENT
  Age: 71 Year
  Sex: Male

DRUGS (4)
  1. TEMOZOLOMIDE [Suspect]
     Active Substance: TEMOZOLOMIDE
     Indication: Glioblastoma
  2. VALPROIC ACID [Suspect]
     Active Substance: VALPROIC ACID
  3. LACOSAMIDE [Concomitant]
     Active Substance: LACOSAMIDE
  4. LACOSAMIDE [Concomitant]
     Active Substance: LACOSAMIDE

REACTIONS (1)
  - Vanishing bile duct syndrome [Recovering/Resolving]
